FAERS Safety Report 5233914-3 (Version None)
Quarter: 2007Q1

REPORT INFORMATION
  Report Type: 
  Country: None (occurrence: None)
  Receive Date: 20070208
  Receipt Date: 20060721
  Transmission Date: 20070707
  Serious: No
  Sender: FDA-Public Use
  Company Number: US-BRISTOL-MYERS SQUIBB COMPANY-13453154

PATIENT
  Age: 76 Year
  Sex: Female

DRUGS (1)
  1. AZACTAM [Suspect]
     Indication: URINARY TRACT INFECTION

REACTIONS (3)
  - BLOOD BILIRUBIN INCREASED [None]
  - CHOLANGITIS [None]
  - HEPATIC ENZYME INCREASED [None]
